FAERS Safety Report 4668683-9 (Version None)
Quarter: 2005Q2

REPORT INFORMATION
  Report Type: 
  Country: None (occurrence: None)
  Receive Date: 20050523
  Receipt Date: 20050329
  Transmission Date: 20051028
  Serious: Yes (Other)
  Sender: FDA-Public Use
  Company Number: PHEH2005US03730

PATIENT
  Age: 74 Year
  Sex: Female

DRUGS (14)
  1. ZOLEDRONATE [Suspect]
     Indication: METASTASES TO BONE
     Dosage: 4 MG, QMO
     Route: 042
     Dates: start: 20030715
  2. FEMARA [Concomitant]
     Indication: BREAST CANCER METASTATIC
     Dosage: 2.5 MG, QD
     Route: 048
     Dates: start: 20030310
  3. SYNTHROID [Concomitant]
     Indication: HYPOTHYROIDISM
  4. FLOVENT [Concomitant]
     Indication: ASTHMA
     Dosage: 110 UG, BID
  5. ASPIRIN [Concomitant]
     Indication: CARDIAC DISORDER
     Dosage: 325 MG, UNK
  6. AMBIEN [Concomitant]
     Indication: INSOMNIA
     Dosage: 10 MG, UNK
  7. ULTRACET [Concomitant]
     Indication: PAIN
     Dosage: 1-2 PER DAY
  8. NAPROXEN [Concomitant]
     Indication: ARTHRITIS
     Dosage: 250 MG, BID
  9. SEREVENT [Concomitant]
     Indication: ASTHMA
     Dosage: 50 UG, QD
  10. PRILOSEC [Concomitant]
     Indication: REFLUX OESOPHAGITIS
     Dosage: 20 MG, QD
  11. CITRACAL + D [Concomitant]
     Indication: OSTEOPENIA
     Dosage: 630 UG, UNK
  12. OCUVITE [Concomitant]
     Dosage: 1 UNK, QD
  13. VICODIN [Concomitant]
     Indication: PAIN
     Dates: start: 20050301
  14. FOSAMAX [Concomitant]
     Indication: OSTEOPENIA
     Dates: end: 20030715

REACTIONS (6)
  - ASEPTIC NECROSIS BONE [None]
  - DENTAL TREATMENT [None]
  - GINGIVAL BLEEDING [None]
  - PAIN IN JAW [None]
  - PERIODONTITIS [None]
  - WOUND DEBRIDEMENT [None]
